FAERS Safety Report 6561828-5 (Version None)
Quarter: 2010Q1

REPORT INFORMATION
  Report Type: 
  Country: None (occurrence: None)
  Receive Date: 20100130
  Receipt Date: 20091028
  Transmission Date: 20100710
  Serious: No
  Sender: FDA-Public Use
  Company Number: US-ABBOTT-09P-163-0606005-00

PATIENT
  Sex: Female
  Weight: 98.972 kg

DRUGS (3)
  1. HUMIRA [Suspect]
     Indication: CROHN'S DISEASE
     Route: 050
     Dates: start: 20091027, end: 20091027
  2. PENTASA [Concomitant]
     Indication: CROHN'S DISEASE
  3. CITOPALM [Concomitant]
     Indication: DEPRESSION

REACTIONS (1)
  - INJECTION SITE PAIN [None]
